FAERS Safety Report 25317039 (Version 2)
Quarter: 2025Q2

REPORT INFORMATION
  Report Type: Spontaneous
  Country: FR (occurrence: FR)
  Receive Date: 20250515
  Receipt Date: 20250516
  Transmission Date: 20250716
  Serious: Yes (Hospitalization, Other)
  Sender: SANOFI AVENTIS
  Company Number: None

PATIENT
  Age: 83 Year
  Sex: Male

DRUGS (18)
  1. FUROSEMIDE [Suspect]
     Active Substance: FUROSEMIDE
     Indication: Cardiac failure
     Dosage: 500 MG, QD
     Route: 048
     Dates: start: 20240416
  2. FUROSEMIDE [Suspect]
     Active Substance: FUROSEMIDE
     Dosage: 250 MG, QD
     Route: 048
     Dates: start: 20240418
  3. FUROSEMIDE [Suspect]
     Active Substance: FUROSEMIDE
     Route: 048
     Dates: start: 20240425
  4. PLAVIX [Suspect]
     Active Substance: CLOPIDOGREL BISULFATE
     Indication: Myocardial ischaemia
     Dosage: 75 MG, QD (0-1-0)
     Route: 048
     Dates: end: 20240420
  5. WARFARIN SODIUM [Suspect]
     Active Substance: WARFARIN SODIUM
     Indication: Atrial fibrillation
     Dosage: 2 MG, QD (2 MG OR 2.5 MG/DAY ALTERNATE DAYS, 2 PER DAY)
     Route: 048
     Dates: start: 20240422, end: 20240422
  6. WARFARIN SODIUM [Suspect]
     Active Substance: WARFARIN SODIUM
     Dosage: 2 MG2.5 MG/DAY ALTERNATED 2/DAY/RESUMED
     Route: 048
     Dates: start: 20240424
  7. WARFARIN SODIUM [Suspect]
     Active Substance: WARFARIN SODIUM
     Dosage: 2.5 MG, QD(2 MG2.5 MG/DAY ALTERNATED 2/DAY)
     Route: 048
  8. CALCIPARINE [Suspect]
     Active Substance: HEPARIN CALCIUM
     Indication: Atrial fibrillation
     Dosage: 0.4 ML, Q12H
     Route: 058
     Dates: end: 20240422
  9. CALCIPARINE [Suspect]
     Active Substance: HEPARIN CALCIUM
     Dosage: 12,500 IU/0.5 ML/RESUMED
     Route: 058
     Dates: start: 20240424
  10. SODIUM BICARBONATE [Concomitant]
     Active Substance: SODIUM BICARBONATE
     Route: 048
  11. TAHOR [Concomitant]
     Active Substance: ATORVASTATIN CALCIUM
     Dosage: 10 MG, QD(0-0-1)
     Route: 048
  12. ZYRTEC [Concomitant]
     Active Substance: CETIRIZINE HYDROCHLORIDE
     Route: 048
  13. BISOPROLOL [Concomitant]
     Active Substance: BISOPROLOL
     Dosage: 1.25 MG, QD(1-0-0)
     Route: 048
  14. ARANESP [Concomitant]
     Active Substance: DARBEPOETIN ALFA
     Dosage: 80 UG, Q15D(1 EVERY 15 DAYS)
     Route: 058
  15. URAPIDIL [Concomitant]
     Active Substance: URAPIDIL
     Route: 048
  16. AMLODIPINE BESYLATE [Concomitant]
     Active Substance: AMLODIPINE BESYLATE
     Dosage: 10 MG, QD(2-0-0/5 MG)
     Route: 048
  17. LANSOPRAZOLE [Concomitant]
     Active Substance: LANSOPRAZOLE
     Dosage: 30 MG, QD(0-0-2)
     Route: 048
  18. DOLIPRANE [Concomitant]
     Active Substance: ACETAMINOPHEN
     Route: 048

REACTIONS (3)
  - Acute kidney injury [Recovered/Resolved]
  - Condition aggravated [Recovered/Resolved]
  - Epistaxis [Recovered/Resolved]

NARRATIVE: CASE EVENT DATE: 20240417
